FAERS Safety Report 10083722 (Version 4)
Quarter: 2014Q2

REPORT INFORMATION
  Report Type: Report from Study
  Country: DE (occurrence: DE)
  Receive Date: 20140417
  Receipt Date: 20140623
  Transmission Date: 20141212
  Serious: Yes (Hospitalization)
  Sender: FDA-Public Use
  Company Number: PHHO2013DE016946

PATIENT
  Sex: 0

DRUGS (3)
  1. AMN107 [Suspect]
     Indication: CHRONIC MYELOID LEUKAEMIA
     Dosage: 200 MG, BID
     Route: 048
     Dates: start: 20101112
  2. AMN107 [Suspect]
     Dosage: (200, 2 M)
     Route: 048
     Dates: start: 20140225, end: 20140408
  3. JODID [Concomitant]
     Indication: OVARIAN NEOPLASM
     Dosage: 200 MG, QD

REACTIONS (2)
  - Breast cancer [Recovered/Resolved]
  - Second primary malignancy [Recovered/Resolved]
